FAERS Safety Report 26077958 (Version 1)
Quarter: 2025Q4

REPORT INFORMATION
  Report Type: Spontaneous
  Country: US (occurrence: US)
  Receive Date: 20251122
  Receipt Date: 20251122
  Transmission Date: 20260118
  Serious: Yes (Other)
  Sender: MDD OPERATIONS
  Company Number: US-MDD US Operations-MDD202510-004281

PATIENT
  Age: 73 Year
  Sex: Male

DRUGS (3)
  1. ONAPGO [Suspect]
     Active Substance: APOMORPHINE HYDROCHLORIDE
     Indication: Parkinsonism
     Dosage: NOT PROVIDED
  2. ONAPGO [Suspect]
     Active Substance: APOMORPHINE HYDROCHLORIDE
     Dosage: AS ORDERED
     Route: 058
  3. ONAPGO [Suspect]
     Active Substance: APOMORPHINE HYDROCHLORIDE
     Dosage: STRENGTH: 98MG/20ML (4.9MG/ML)?DOSE: INFUSE CONTENTS OF 1 CARTRIDGE UNDER THE SKIN FOR 16 HOURS OR L
     Dates: start: 202509

REACTIONS (2)
  - Hallucination, visual [Not Recovered/Not Resolved]
  - Product use in unapproved indication [Unknown]

NARRATIVE: CASE EVENT DATE: 20251010
